FAERS Safety Report 17398398 (Version 1)
Quarter: 2020Q1

REPORT INFORMATION
  Report Type: Spontaneous
  Country: US (occurrence: US)
  Receive Date: 20200210
  Receipt Date: 20200210
  Transmission Date: 20200409
  Serious: No
  Sender: FDA-Public Use
  Company Number: US-VAYAPHARMA-2018-US-013872

PATIENT
  Age: 30 Year
  Sex: Female
  Weight: 57.61 kg

DRUGS (3)
  1. ADDERALL [Concomitant]
     Active Substance: AMPHETAMINE ASPARTATE\AMPHETAMINE SULFATE\DEXTROAMPHETAMINE SACCHARATE\DEXTROAMPHETAMINE SULFATE
  2. PROTONIX [Concomitant]
     Active Substance: PANTOPRAZOLE SODIUM
  3. VAYARIN (NON-SPECIFIC) [Suspect]
     Active Substance: DOCONEXENT\ICOSAPENT\PHOSPHATIDYL SERINE
     Indication: ATTENTION DEFICIT/HYPERACTIVITY DISORDER
     Dosage: AS DIRECTED
     Route: 048
     Dates: start: 20180814

REACTIONS (2)
  - Bowel movement irregularity [Recovered/Resolved]
  - Abdominal discomfort [Recovered/Resolved]

NARRATIVE: CASE EVENT DATE: 20180814
